FAERS Safety Report 6136337-8 (Version None)
Quarter: 2009Q1

REPORT INFORMATION
  Report Type: 
  Country: None (occurrence: None)
  Receive Date: 20090330
  Receipt Date: 20090320
  Transmission Date: 20090719
  Serious: Yes (Other)
  Sender: FDA-Public Use
  Company Number: FR-JNJFOC-20090305331

PATIENT
  Sex: Male

DRUGS (2)
  1. HALDOL DECANOAS [Suspect]
     Route: 048
  2. HALDOL DECANOAS [Suspect]
     Indication: SCHIZOPHRENIA
     Route: 048

REACTIONS (1)
  - INTENTIONAL DRUG MISUSE [None]
